FAERS Safety Report 24431373 (Version 2)
Quarter: 2024Q4

REPORT INFORMATION
  Report Type: Report from Study
  Country: DE (occurrence: DE)
  Receive Date: 20241014
  Receipt Date: 20241015
  Transmission Date: 20250114
  Serious: Yes (Death)
  Sender: ABBVIE
  Company Number: DE-ABBVIE-5959678

PATIENT
  Age: 62 Year
  Sex: Female

DRUGS (1)
  1. MIRVETUXIMAB SORAVTANSINE [Suspect]
     Active Substance: MIRVETUXIMAB SORAVTANSINE
     Indication: Ovarian cancer
     Dosage: DAY 1 OF A 3 WEEK CYCLE
     Route: 065

REACTIONS (2)
  - Death [Fatal]
  - Disease progression [Unknown]
